FAERS Safety Report 8536357-X (Version None)
Quarter: 2012Q3

REPORT INFORMATION
  Report Type: 
  Country: None (occurrence: None)
  Receive Date: 20120725
  Receipt Date: 20120716
  Transmission Date: 20120928
  Serious: No
  Sender: FDA-Public Use
  Company Number: US-JNJFOC-20120610210

PATIENT
  Sex: Female
  Weight: 63.5 kg

DRUGS (15)
  1. FENTANYL-100 [Suspect]
     Indication: MUSCULOSKELETAL PAIN
     Route: 062
     Dates: start: 20120101
  2. FENTANYL-100 [Suspect]
     Route: 062
     Dates: start: 20120401, end: 20120401
  3. FENTANYL-100 [Suspect]
     Indication: BACK PAIN
     Route: 062
     Dates: start: 20120101
  4. FENTANYL-100 [Suspect]
     Indication: NECK PAIN
     Route: 062
     Dates: start: 20120101
  5. FENTANYL-100 [Suspect]
     Route: 062
     Dates: start: 20120101
  6. FENTANYL-100 [Suspect]
     Route: 062
     Dates: start: 20120101
  7. FENTANYL-100 [Suspect]
     Indication: MUSCULOSKELETAL PAIN
     Route: 062
     Dates: start: 20120101
  8. FENTANYL-100 [Suspect]
     Route: 062
     Dates: start: 20120401, end: 20120401
  9. FENTANYL-100 [Suspect]
     Route: 062
     Dates: start: 20120101
  10. FENTANYL-100 [Suspect]
     Route: 062
     Dates: start: 20120101
  11. FENTANYL-100 [Suspect]
     Indication: NECK PAIN
     Route: 062
     Dates: start: 20120101
  12. FENTANYL-100 [Suspect]
     Indication: BACK PAIN
     Route: 062
     Dates: start: 20120101
  13. FENTANYL-100 [Suspect]
     Indication: NECK PAIN
     Route: 062
     Dates: start: 20120401, end: 20120401
  14. FENTANYL-100 [Suspect]
     Indication: MUSCULOSKELETAL PAIN
     Route: 062
     Dates: start: 20120101
  15. FENTANYL-100 [Suspect]
     Indication: BACK PAIN
     Route: 062
     Dates: start: 20120101

REACTIONS (6)
  - DRUG EFFECT INCREASED [None]
  - INAPPROPRIATE SCHEDULE OF DRUG ADMINISTRATION [None]
  - DRUG EFFECT DECREASED [None]
  - DRUG DOSE OMISSION [None]
  - PRODUCT QUALITY ISSUE [None]
  - POOR QUALITY DRUG ADMINISTERED [None]
